FAERS Safety Report 7919061-8 (Version None)
Quarter: 2011Q4

REPORT INFORMATION
  Report Type: 
  Country: None (occurrence: None)
  Receive Date: 20111116
  Receipt Date: 20111107
  Transmission Date: 20120403
  Serious: Yes (Other)
  Sender: FDA-Public Use
  Company Number: CA-ASTRAZENECA-2011SE67453

PATIENT

DRUGS (1)
  1. SEROQUEL [Suspect]
     Route: 048

REACTIONS (9)
  - ABDOMINAL DISCOMFORT [None]
  - DEPRESSION [None]
  - BLISTER [None]
  - GAIT DISTURBANCE [None]
  - PRURITUS [None]
  - APPENDICITIS [None]
  - DIARRHOEA [None]
  - WEIGHT DECREASED [None]
  - SUICIDAL IDEATION [None]
